FAERS Safety Report 10215699 (Version 1)
Quarter: 2014Q2

REPORT INFORMATION
  Report Type: Spontaneous
  Country: IN (occurrence: None)
  Receive Date: 20140515
  Receipt Date: 20140515
  Transmission Date: 20141212
  Serious: Yes (Death)
  Sender: FDA-Public Use
  Company Number: LIT-031-14-IN

PATIENT
  Age: 70 Year
  Sex: Female

DRUGS (1)
  1. HUMAN NORMAL IMMUNOGLOBULIN (IV) (TRADENAME UNKNOWN) [Suspect]
     Indication: GUILLAIN-BARRE SYNDROME
     Route: 042

REACTIONS (6)
  - Anaphylactic reaction [None]
  - Acute myocardial infarction [None]
  - Dyspnoea [None]
  - Hypotension [None]
  - Tachycardia [None]
  - Infusion related reaction [None]
